FAERS Safety Report 14573668 (Version 1)
Quarter: 2018Q1

REPORT INFORMATION
  Report Type: Report from Study
  Country: DE (occurrence: DE)
  Receive Date: 20180226
  Receipt Date: 20180226
  Transmission Date: 20180509
  Serious: Yes (Hospitalization, Other)
  Sender: FDA-Public Use
  Company Number: DE-PFM-2018-02295

PATIENT

DRUGS (18)
  1. VINORELBINE TARTRATE. [Suspect]
     Active Substance: VINORELBINE TARTRATE
     Indication: BREAST CANCER
     Dosage: 54.6 MG, UNK
     Route: 042
     Dates: start: 20140304, end: 20140304
  2. XELODA [Suspect]
     Active Substance: CAPECITABINE
     Indication: BREAST CANCER
     Dosage: UNK
     Route: 048
     Dates: start: 20131008, end: 20131021
  3. XELODA [Suspect]
     Active Substance: CAPECITABINE
     Dosage: UNK
     Route: 048
     Dates: start: 20131120, end: 20131203
  4. AVASTIN [Suspect]
     Active Substance: BEVACIZUMAB
     Dosage: 750 MG EVERY 2 WEEKS
     Route: 042
     Dates: start: 20131008, end: 20131008
  5. DEXAMETHASON [Concomitant]
     Active Substance: DEXAMETHASONE
     Dosage: 8 MG EVERY 2 WEEKS
     Route: 048
     Dates: start: 20131210, end: 20140407
  6. PACLITAXEL. [Concomitant]
     Active Substance: PACLITAXEL
     Dosage: 113 MG, UNK
     Route: 042
     Dates: start: 20140130
  7. PACLITAXEL. [Concomitant]
     Active Substance: PACLITAXEL
     Dosage: 113 MG, UNK
     Route: 042
     Dates: start: 20131211, end: 20140220
  8. AVASTIN [Suspect]
     Active Substance: BEVACIZUMAB
     Indication: BREAST CANCER
     Dosage: 750 MG EVERY 2 WEEKS
     Route: 042
     Dates: start: 20131211, end: 20131211
  9. ALOXI [Concomitant]
     Active Substance: PALONOSETRON HYDROCHLORIDE
     Indication: PREMEDICATION
     Dosage: 250 ?G, EVERY 2 WEEKS
     Route: 042
     Dates: start: 20131211, end: 20140407
  10. INNOHEP [Concomitant]
     Active Substance: TINZAPARIN SODIUM
     Indication: VENOUS THROMBOSIS
     Dosage: UNK
     Route: 058
     Dates: start: 20140109, end: 20140407
  11. RANITIDIN [Concomitant]
     Active Substance: RANITIDINE HYDROCHLORIDE
     Indication: PREMEDICATION
     Dosage: 50 MG, EVERY 2 WEEKS
     Route: 042
     Dates: start: 20131211, end: 20140407
  12. DEXAMETHASON [Concomitant]
     Active Substance: DEXAMETHASONE
     Indication: PREMEDICATION
     Dosage: 16 MG EVERY 2 WEEKS
     Route: 042
     Dates: start: 20131211, end: 20140407
  13. VALSARTAN. [Concomitant]
     Active Substance: VALSARTAN
     Dosage: UNK
     Route: 048
     Dates: start: 20131112, end: 20140407
  14. L-THYROXIN [Concomitant]
     Active Substance: LEVOTHYROXINE SODIUM
     Indication: HYPOTHYROIDISM
     Dosage: UNK
     Route: 048
     Dates: start: 20000101, end: 20140407
  15. FENISTIL [Concomitant]
     Active Substance: DIMETHINDENE
     Indication: PREMEDICATION
     Dosage: 4 MG, EVERY 2 WEEKS
     Route: 042
     Dates: start: 20131211, end: 20140407
  16. XELODA [Suspect]
     Active Substance: CAPECITABINE
     Dosage: UNK
     Route: 048
     Dates: start: 20131101, end: 20131114
  17. PACLITAXEL. [Concomitant]
     Active Substance: PACLITAXEL
     Indication: BREAST CANCER
     Dosage: 113 MG, UNK
     Route: 042
     Dates: start: 20140109
  18. VALSARTAN. [Concomitant]
     Active Substance: VALSARTAN
     Indication: PRODUCT USED FOR UNKNOWN INDICATION
     Dosage: 80 MG, UNK
     Route: 048
     Dates: start: 19900101, end: 20131111

REACTIONS (3)
  - Acute polyneuropathy [Not Recovered/Not Resolved]
  - Balance disorder [Recovered/Resolved]
  - General physical health deterioration [Recovered/Resolved]

NARRATIVE: CASE EVENT DATE: 20131218
